FAERS Safety Report 7184882-9 (Version None)
Quarter: 2010Q4

REPORT INFORMATION
  Report Type: 
  Country: None (occurrence: None)
  Receive Date: 20101222
  Receipt Date: 20101213
  Transmission Date: 20110411
  Serious: Yes (Other)
  Sender: FDA-Public Use
  Company Number: GR-JNJFOC-20101205034

PATIENT
  Sex: Male

DRUGS (3)
  1. CAELYX [Suspect]
     Indication: LYMPHOMA
     Route: 042
  2. CAELYX [Suspect]
     Route: 042
  3. CAELYX [Suspect]
     Route: 042

REACTIONS (2)
  - EXTRAVASATION [None]
  - OEDEMA PERIPHERAL [None]
